FAERS Safety Report 10224238 (Version 1)
Quarter: 2014Q1

REPORT INFORMATION
  Report Type: Spontaneous
  Country: US (occurrence: None)
  Receive Date: 20140306
  Receipt Date: 20140306
  Transmission Date: 20141002
  Serious: Yes (Hospitalization)
  Sender: FDA-Public Use
  Company Number: 163-21880-13093289

PATIENT
  Age: 82 Year
  Sex: Male

DRUGS (9)
  1. REVLIMID (LENALIDOMIDE) (10 MILLIGRAM, CAPSULES) [Suspect]
     Indication: PLASMA CELL MYELOMA
     Route: 048
     Dates: start: 20130827
  2. FEXOFENADINE HCL (FEXOFENADINE HYDROCHLORIDE) (UNKNOWN) [Concomitant]
  3. VITAMIN D (ERGOCALCIFEROL) (UNKNOWN) [Concomitant]
  4. CALCIUM (CALCIUM) (UJNKNOWN) [Concomitant]
  5. SULINDAC (SULINDAC) (UNKNOWN) [Concomitant]
  6. ASPIRIN (ACETYLSALICYLIC ACID) (UNKNOWN) (ACETYLSALICYLIC ACID) [Concomitant]
  7. ALLEGRA (FEXOFENADINE HYDROCHLORIDE) (UNKNOWN) [Concomitant]
  8. AMITRIPTYLINE HCL (AMITRIPTYLINE HYDROCHLORIDE) (UNKNOWN) [Concomitant]
  9. TERAZOSIN HCL (TERAZOSIN HYDROCHLORIDE) (UNKNOWN) [Concomitant]

REACTIONS (2)
  - Nausea [None]
  - Bronchitis [None]
